FAERS Safety Report 7315861-6 (Version None)
Quarter: 2011Q1

REPORT INFORMATION
  Report Type: 
  Country: None (occurrence: None)
  Receive Date: 20110225
  Receipt Date: 20110214
  Transmission Date: 20110831
  Serious: Yes (Hospitalization, Other)
  Sender: FDA-Public Use
  Company Number: US-ROCHE-717491

PATIENT
  Sex: Female
  Weight: 99.8 kg

DRUGS (4)
  1. ACCUTANE [Suspect]
     Indication: ACNE
     Route: 048
     Dates: start: 20000101
  2. SOTRET [Suspect]
     Route: 048
     Dates: start: 20060203, end: 20060505
  3. ACCUTANE [Suspect]
     Dosage: DOSE FORM: CAPSULE
     Route: 048
     Dates: start: 20050819
  4. SOTRET [Suspect]
     Route: 048
     Dates: start: 20050819, end: 20060202

REACTIONS (10)
  - LARGE INTESTINE PERFORATION [None]
  - DEPRESSION [None]
  - ACNE [None]
  - LIP DRY [None]
  - INFLAMMATORY BOWEL DISEASE [None]
  - COLONIC POLYP [None]
  - ABSCESS INTESTINAL [None]
  - CROHN'S DISEASE [None]
  - COLITIS [None]
  - COLONIC STENOSIS [None]
